FAERS Safety Report 10191585 (Version 2)
Quarter: 2016Q3

REPORT INFORMATION
  Report Type: Spontaneous
  Country: BR (occurrence: BR)
  Receive Date: 20140523
  Receipt Date: 20160823
  Transmission Date: 20161108
  Serious: Yes (Other)
  Sender: FDA-Public Use
  Company Number: BR-PFIZER INC-2014140111

PATIENT
  Age: 83 Year
  Sex: Female
  Weight: 75 kg

DRUGS (6)
  1. ENALAPRIL [Concomitant]
     Active Substance: ENALAPRIL
     Indication: BLOOD PRESSURE ABNORMAL
     Dosage: UNK
     Dates: start: 2004
  2. GEODON [Suspect]
     Active Substance: ZIPRASIDONE HYDROCHLORIDE\ZIPRASIDONE MESYLATE
     Dosage: 40 MG (1 CAPSULE), DAILY
     Route: 048
     Dates: start: 1994
  3. AMIODARONE HYDROCHLORIDE. [Concomitant]
     Active Substance: AMIODARONE HYDROCHLORIDE
     Indication: MITRAL VALVE DISEASE
     Dosage: UNK
     Dates: start: 2013
  4. GEODON [Suspect]
     Active Substance: ZIPRASIDONE HYDROCHLORIDE\ZIPRASIDONE MESYLATE
     Dosage: 80 MG, UNK
     Route: 048
  5. OLCADIL [Concomitant]
     Active Substance: CLOXAZOLAM
     Dosage: 1 CAPSULE AT NIGHT AND 1 IN THE MORNING
  6. OMEPRAZOLE. [Concomitant]
     Active Substance: OMEPRAZOLE
     Indication: GASTRIC DISORDER
     Dosage: 1 CAPSULE, DAILY

REACTIONS (11)
  - Upper limb fracture [Unknown]
  - Screaming [Unknown]
  - Abnormal behaviour [Unknown]
  - Irritability [Unknown]
  - Memory impairment [Unknown]
  - Confusional state [Unknown]
  - Femur fracture [Unknown]
  - Dyspnoea [Unknown]
  - Terminal insomnia [Unknown]
  - Drug ineffective [Unknown]
  - Fatigue [Unknown]

NARRATIVE: CASE EVENT DATE: 201608
